FAERS Safety Report 18527878 (Version 2)
Quarter: 2020Q4

REPORT INFORMATION
  Report Type: Report from Study
  Country: BR (occurrence: BR)
  Receive Date: 20201120
  Receipt Date: 20201218
  Transmission Date: 20210114
  Serious: Yes (Death, Hospitalization, Other)
  Sender: FDA-Public Use
  Company Number: NVSC2020BR310092

PATIENT
  Sex: Female

DRUGS (1)
  1. DIOVAN [Suspect]
     Active Substance: VALSARTAN
     Indication: BLOOD PRESSURE MANAGEMENT
     Dosage: 1 DF, QD (PER DAY IN THE MORNING)
     Route: 065
     Dates: start: 2017, end: 202005

REACTIONS (10)
  - Depressed mood [Unknown]
  - Multiple organ dysfunction syndrome [Fatal]
  - Limb discomfort [Fatal]
  - Organ failure [Fatal]
  - Thrombosis [Fatal]
  - Renal failure [Fatal]
  - Monoplegia [Unknown]
  - Fall [Unknown]
  - Blood pressure fluctuation [Unknown]
  - Cardiac arrest [Fatal]
